FAERS Safety Report 7801598-3 (Version None)
Quarter: 2011Q4

REPORT INFORMATION
  Report Type: 
  Country: None (occurrence: None)
  Receive Date: 20111006
  Receipt Date: 20111006
  Transmission Date: 20120403
  Serious: Yes (Hospitalization)
  Sender: FDA-Public Use
  Company Number: None

PATIENT
  Age: 83 Year
  Sex: Female
  Weight: 69 kg

DRUGS (21)
  1. GLIPIZIDE [Concomitant]
  2. M.V.I. [Concomitant]
  3. GELNIQUE [Concomitant]
  4. FERROUS SULFATE TAB [Concomitant]
  5. ASPIRIN [Suspect]
  6. SALINE NS [Concomitant]
  7. OCULAR [Concomitant]
  8. ELMIRON [Concomitant]
  9. POTASSIUM CHLORIDE [Concomitant]
  10. PHENAZOPYRIDINE HCL TAB [Concomitant]
  11. NITROGLYCERIN [Concomitant]
  12. ISOSORBIDE DINITRATE [Concomitant]
  13. FUROSEMIDE [Concomitant]
  14. DIOVAN [Concomitant]
  15. COUMADIN [Suspect]
  16. COUMADIN [Suspect]
  17. METOPROLOL TARTRATE [Concomitant]
  18. CYMBALTA [Concomitant]
  19. METFORMIN HYDROCHLORIDE [Concomitant]
  20. MAG OX [Concomitant]
  21. LORAZEPAM [Concomitant]

REACTIONS (2)
  - ASTHENIA [None]
  - EPISTAXIS [None]
